FAERS Safety Report 5594019-5 (Version None)
Quarter: 2008Q1

REPORT INFORMATION
  Report Type: 
  Country: None (occurrence: None)
  Receive Date: 20080114
  Receipt Date: 20071227
  Transmission Date: 20080703
  Serious: Yes (Hospitalization)
  Sender: FDA-Public Use
  Company Number: 2007JP004863

PATIENT
  Age: 60 Year
  Sex: Female
  Weight: 58 kg

DRUGS (10)
  1. TACROLIMUS [Suspect]
     Indication: RHEUMATOID ARTHRITIS
     Dosage: 3 MG, ORAL; 3 MG, ORAL
     Route: 048
     Dates: start: 20070629, end: 20070705
  2. TACROLIMUS [Suspect]
     Indication: RHEUMATOID ARTHRITIS
     Dosage: 3 MG, ORAL; 3 MG, ORAL
     Route: 048
     Dates: start: 20070727, end: 20070830
  3. METHOTREXATE TABLET [Concomitant]
  4. LOXONIN (LOXOPROFEN) TABLET [Concomitant]
  5. SEVEN EP (ENZYMES NOS) CAPSULE [Concomitant]
  6. MARZULENE S (LEVOGLUTAMIDE, SODIUM GUALENATE) TABLET [Concomitant]
  7. MOHRUS (KETOPROFEN) TAPE [Concomitant]
  8. FLOMOX (CEFCAPENE PIVOXIL HYDROCHLORIDE) TABLET [Concomitant]
  9. DASEN (SERRAPEPTASE) TABLET [Concomitant]
  10. XYLOCAINE (LIDOCAINE) INJECTION [Concomitant]

REACTIONS (2)
  - BONE GIANT CELL TUMOUR BENIGN [None]
  - VOMITING [None]
